FAERS Safety Report 5382242-4 (Version None)
Quarter: 2007Q3

REPORT INFORMATION
  Report Type: 
  Country: None (occurrence: None)
  Receive Date: 20070709
  Receipt Date: 20070627
  Transmission Date: 20080115
  Serious: Yes (Other)
  Sender: FDA-Public Use
  Company Number: JP-PFIZER INC-2007054528

PATIENT
  Sex: Female

DRUGS (13)
  1. XALATAN [Suspect]
     Indication: GLAUCOMA
     Route: 047
  2. TIMOLOL MALEATE [Concomitant]
     Route: 047
  3. TRUSOPT [Concomitant]
     Route: 047
  4. LEVOFLOXACIN [Concomitant]
     Route: 047
  5. RINDERON [Concomitant]
     Route: 047
  6. CALSLOT [Concomitant]
     Route: 048
  7. MICARDIS [Concomitant]
     Route: 048
  8. DEPAS [Concomitant]
     Route: 048
  9. APLACE [Concomitant]
     Route: 048
  10. BIOFERMIN [Concomitant]
     Route: 048
  11. FAMOTIDINE [Concomitant]
     Route: 048
  12. ALINAMIN [Concomitant]
     Route: 048
  13. BUFFERIN [Concomitant]
     Route: 048

REACTIONS (2)
  - HALLUCINATION [None]
  - VERTIGO [None]
